FAERS Safety Report 5013690-X (Version None)
Quarter: 2006Q2

REPORT INFORMATION
  Report Type: 
  Country: None (occurrence: None)
  Receive Date: 20060526
  Receipt Date: 20060526
  Transmission Date: 20061013
  Serious: Yes (Other)
  Sender: FDA-Public Use
  Company Number: None

PATIENT
  Age: 53 Year
  Sex: Female
  Weight: 117.9352 kg

DRUGS (7)
  1. CAPTOPRIL [Suspect]
     Dosage: 50 MG ONCE DAILY ORALLY
     Dates: start: 20060508, end: 20060523
  2. METFORMIN [Concomitant]
  3. HYDROCHLOROTHIAZIDE [Concomitant]
  4. PREVACID [Concomitant]
  5. ALBUTEROL [Concomitant]
  6. QVAR 40 [Concomitant]
  7. ALBUTEROL SULFATE AUTOHALER [Concomitant]

REACTIONS (7)
  - ASTHENIA [None]
  - DIZZINESS [None]
  - DRUG DISPENSING ERROR [None]
  - DYSPNOEA [None]
  - HEADACHE [None]
  - MEDICATION ERROR [None]
  - SOMNOLENCE [None]
